FAERS Safety Report 9723086 (Version 1)
Quarter: 2013Q4

REPORT INFORMATION
  Report Type: Spontaneous
  Country: US (occurrence: None)
  Receive Date: 20131127
  Receipt Date: 20131127
  Transmission Date: 20140711
  Serious: Yes (Hospitalization)
  Sender: FDA-Public Use
  Company Number: None

PATIENT
  Age: 73 Year
  Sex: Male
  Weight: 90.8 kg

DRUGS (15)
  1. PRIALT [Suspect]
     Indication: BACK PAIN
     Route: 037
  2. PRIALT [Suspect]
     Indication: PAIN
     Route: 037
  3. ASPIRIN [Concomitant]
  4. CALCIUM [Concomitant]
  5. VITAMIN D [Concomitant]
  6. COQ-10 [Concomitant]
  7. VITAMIN E [Concomitant]
  8. POTASSIUM CHLORIDE [Concomitant]
  9. LIDODERM [Concomitant]
  10. FUROSEMIDE [Concomitant]
  11. MINOCYCLINE [Concomitant]
  12. GABAPENTIN [Concomitant]
  13. OXYCODONE [Concomitant]
  14. LANSOPRAZOLE [Concomitant]
  15. MODAFINIL [Concomitant]

REACTIONS (5)
  - Hallucination, olfactory [None]
  - Homicidal ideation [None]
  - Suicidal ideation [None]
  - Paranoia [None]
  - Delusion [None]
